FAERS Safety Report 4986923-3 (Version None)
Quarter: 2006Q2

REPORT INFORMATION
  Report Type: 
  Country: None (occurrence: None)
  Receive Date: 20060501
  Receipt Date: 20060324
  Transmission Date: 20061013
  Serious: Yes (Life-Threatening, Hospitalization)
  Sender: FDA-Public Use
  Company Number: PHNU2006DE01456

PATIENT
  Age: 44 Year
  Sex: Female
  Weight: 80 kg

DRUGS (8)
  1. TEGRETOL [Suspect]
     Indication: EPILEPSY
     Dosage: 0.5-0-1 / DAY
     Route: 048
  2. ERGENYL [Concomitant]
     Indication: EPILEPSY
     Dosage: 1-0-2 /D
     Route: 048
  3. IBUPROFEN [Suspect]
     Indication: HEADACHE
     Dosage: WHEN NECESSARY
  4. IBUPROFEN [Suspect]
     Dosage: 800 MG / DAY
     Dates: start: 20060128, end: 20060205
  5. L-THYROXINE [Concomitant]
     Dosage: 1-0-1 / DAY
  6. RIVOTRIL [Concomitant]
     Dosage: 1-0-1 / DAY
  7. PARACETAMOL [Concomitant]
  8. DORMICUM [Concomitant]

REACTIONS (30)
  - AGITATION [None]
  - ANOREXIA [None]
  - APATHY [None]
  - BACK PAIN [None]
  - BRAIN CONTUSION [None]
  - CONCUSSION [None]
  - CORONARY ARTERY DISEASE [None]
  - DEPRESSED LEVEL OF CONSCIOUSNESS [None]
  - DISORIENTATION [None]
  - DIZZINESS [None]
  - DRUG INTERACTION [None]
  - ELECTROCARDIOGRAM ST SEGMENT DEPRESSION [None]
  - ELECTROENCEPHALOGRAM ABNORMAL [None]
  - FALL [None]
  - FATIGUE [None]
  - GENERAL PHYSICAL CONDITION ABNORMAL [None]
  - GRAND MAL CONVULSION [None]
  - HEADACHE [None]
  - HYPOACUSIS [None]
  - HYPONATRAEMIA [None]
  - HYPOREFLEXIA [None]
  - LEUKOCYTOSIS [None]
  - LISTLESS [None]
  - NAUSEA [None]
  - PERSONALITY CHANGE [None]
  - SKIN LACERATION [None]
  - SOMNOLENCE [None]
  - THROMBOCYTHAEMIA [None]
  - VISUAL ACUITY REDUCED [None]
  - VOMITING [None]
